FAERS Safety Report 5735670-9 (Version None)
Quarter: 2008Q2

REPORT INFORMATION
  Report Type: 
  Country: None (occurrence: None)
  Receive Date: 20080512
  Receipt Date: 20080430
  Transmission Date: 20081010
  Serious: Yes (Congenital Anomaly)
  Sender: FDA-Public Use
  Company Number: FR-PFIZER INC-2008039210

PATIENT

DRUGS (1)
  1. RELPAX [Suspect]

REACTIONS (2)
  - BRAIN MALFORMATION [None]
  - DRUG EXPOSURE DURING PREGNANCY [None]
